FAERS Safety Report 5505177-2 (Version None)
Quarter: 2007Q4

REPORT INFORMATION
  Report Type: 
  Country: None (occurrence: None)
  Receive Date: 20071102
  Receipt Date: 20071024
  Transmission Date: 20080405
  Serious: Yes (Other)
  Sender: FDA-Public Use
  Company Number: PHBS2007CN17713

PATIENT
  Age: 24 Year
  Sex: Female

DRUGS (1)
  1. VOLTAREN [Suspect]
     Indication: NECK PAIN
     Dosage: 1 DF, ONCE/SINGLE
     Route: 061
     Dates: start: 20071022, end: 20071022

REACTIONS (5)
  - ANAPHYLACTIC REACTION [None]
  - APPLICATION SITE ERYTHEMA [None]
  - APPLICATION SITE EXFOLIATION [None]
  - APPLICATION SITE PRURITUS [None]
  - APPLICATION SITE SWELLING [None]
